FAERS Safety Report 10182728 (Version 1)
Quarter: 2014Q2

REPORT INFORMATION
  Report Type: Spontaneous
  Country: US (occurrence: None)
  Receive Date: 20140425
  Receipt Date: 20140425
  Transmission Date: 20141212
  Serious: No
  Sender: FDA-Public Use
  Company Number: 1334887

PATIENT
  Sex: Male

DRUGS (2)
  1. ZELBORAF [Suspect]
     Indication: MALIGNANT MELANOMA
     Dosage: 4 IN 12 HR
  2. BYSTOLIC (NEBIVOLOL HYDROCHLORIDE) [Concomitant]

REACTIONS (1)
  - Rash pruritic [None]
